FAERS Safety Report 4627512-X (Version None)
Quarter: 2005Q2

REPORT INFORMATION
  Report Type: 
  Country: None (occurrence: None)
  Receive Date: 20050401
  Receipt Date: 20050319
  Transmission Date: 20051028
  Serious: Yes (Hospitalization, Other)
  Sender: FDA-Public Use
  Company Number: 2004117990

PATIENT
  Age: 62 Year
  Sex: Male
  Weight: 77.1115 kg

DRUGS (10)
  1. CELEBREX [Suspect]
     Indication: PROSTATE CANCER
     Dosage: 800 MG (400 MG, 2 IN 1 D), ORAL
     Route: 048
  2. ASPIRIN [Concomitant]
  3. FINASTERIDE [Concomitant]
  4. EZETIMIBE (EZETIMIBE) [Concomitant]
  5. EZETIMIBE/SIMVASTATIN (EZETIMIBE, SIMVASTATIN) [Concomitant]
  6. IRBESARTAN [Concomitant]
  7. METOPROLOL TARTRATE [Concomitant]
  8. TOCOPHEROL (TOCOPHEROL) [Concomitant]
  9. INDAPAMIDE [Concomitant]
  10. POTASSIUM ACETATE [Concomitant]

REACTIONS (6)
  - ABDOMINAL PAIN [None]
  - CHEST PAIN [None]
  - CONDUCTION DISORDER [None]
  - CORONARY ARTERY OCCLUSION [None]
  - DYSPNOEA [None]
  - STOMACH DISCOMFORT [None]
